FAERS Safety Report 5107886-6 (Version None)
Quarter: 2006Q3

REPORT INFORMATION
  Report Type: 
  Country: None (occurrence: None)
  Receive Date: 20060915
  Receipt Date: 20060830
  Transmission Date: 20061208
  Serious: Yes (Hospitalization)
  Sender: FDA-Public Use
  Company Number: 2006107818

PATIENT
  Age: 84 Year
  Sex: Female
  Weight: 66.6788 kg

DRUGS (1)
  1. BEXTRA [Suspect]
     Indication: PAIN IN EXTREMITY
     Dosage: 10 MG (10 MG, 1 IN 1 D),
     Dates: start: 20030303, end: 20030311

REACTIONS (1)
  - STEVENS-JOHNSON SYNDROME [None]
